FAERS Safety Report 9518617 (Version 1)
Quarter: 2013Q3

REPORT INFORMATION
  Report Type: Spontaneous
  Country: PL (occurrence: PL)
  Receive Date: 20130912
  Receipt Date: 20130912
  Transmission Date: 20140515
  Serious: Yes (Hospitalization, Other)
  Sender: FDA-Public Use
  Company Number: PHHY2013PL098859

PATIENT
  Age: 43 Year
  Sex: Female

DRUGS (1)
  1. TERBINAFINE [Suspect]
     Indication: ONYCHOMYCOSIS
     Dosage: 250 MG, DAILY
     Route: 048

REACTIONS (9)
  - Systemic lupus erythematosus [Unknown]
  - Schizophrenia, paranoid type [Unknown]
  - Renal disorder [Unknown]
  - Raynaud^s phenomenon [Unknown]
  - Arthralgia [Unknown]
  - Pancytopenia [Unknown]
  - Subacute cutaneous lupus erythematosus [Unknown]
  - Skin lesion [Recovered/Resolved]
  - Rash [Unknown]
